FAERS Safety Report 4403886-X (Version None)
Quarter: 2004Q3

REPORT INFORMATION
  Report Type: 
  Country: None (occurrence: None)
  Receive Date: 20040719
  Receipt Date: 20040712
  Transmission Date: 20050211
  Serious: Yes (Hospitalization)
  Sender: FDA-Public Use
  Company Number: 2004042038

PATIENT
  Sex: Female

DRUGS (2)
  1. DOZILE (DOXYLAMINE SUCCINATE) [Suspect]
     Dosage: ORAL
     Route: 048
  2. ORAL CONTRACEPTIVE NOS (ORAL CONTRACEPTIVE NOS) [Concomitant]

REACTIONS (2)
  - BRONCHOSPASM [None]
  - HYPERSENSITIVITY [None]
